FAERS Safety Report 8291026-9 (Version None)
Quarter: 2012Q2

REPORT INFORMATION
  Report Type: 
  Country: None (occurrence: None)
  Receive Date: 20120417
  Receipt Date: 20111122
  Transmission Date: 20120825
  Serious: No
  Sender: FDA-Public Use
  Company Number: US-ASTRAZENECA-2011SE70289

PATIENT
  Sex: Male

DRUGS (3)
  1. NEXIUM [Suspect]
     Route: 048
  2. VITAMIN D [Concomitant]
  3. CALCIUM CARBONATE [Concomitant]

REACTIONS (2)
  - FEELING ABNORMAL [None]
  - OFF LABEL USE [None]
